FAERS Safety Report 7475504-8 (Version None)
Quarter: 2011Q2

REPORT INFORMATION
  Report Type: 
  Country: None (occurrence: None)
  Receive Date: 20110512
  Receipt Date: 20110429
  Transmission Date: 20111010
  Serious: Yes (Hospitalization, Other)
  Sender: FDA-Public Use
  Company Number: PHHO2010ZA15903

PATIENT
  Sex: Male
  Weight: 66 kg

DRUGS (14)
  1. TASIGNA [Suspect]
     Indication: GASTROINTESTINAL STROMAL TUMOUR
     Dosage: 400 MG, BID
     Route: 048
     Dates: start: 20101013, end: 20101014
  2. TASIGNA [Suspect]
     Dosage: 400 MG, BID
     Route: 048
     Dates: end: 20101101
  3. IMATINIB MESYLATE [Suspect]
     Dosage: 400 MG, DAILY
     Route: 048
     Dates: start: 20110421
  4. ZAFOR [Suspect]
     Indication: NAUSEA
     Dosage: 400MG PRN BD
     Route: 048
     Dates: start: 20101017, end: 20101026
  5. TASIGNA [Suspect]
     Dosage: 400 MG, QD
     Route: 048
     Dates: start: 20101119, end: 20110411
  6. IMATINIB MESYLATE [Suspect]
     Indication: GASTROINTESTINAL STROMAL TUMOUR
     Dosage: 400 MG, QD
     Route: 048
     Dates: start: 20110416, end: 20110417
  7. DURAGESIC-100 [Suspect]
  8. CALCIUM [Concomitant]
  9. TASIGNA [Suspect]
     Dosage: 400 MG, QD
  10. LENTOGESIC [Suspect]
     Indication: PAIN
     Dosage: 1-2 TABLETS 4-6 HOURLY
     Route: 048
     Dates: start: 20101012, end: 20101026
  11. SUCRALFATE [Concomitant]
     Indication: DYSPEPSIA
  12. IRON SUPPLEMENTS [Concomitant]
  13. MORPHINE [Suspect]
  14. RABEPRAZOLE SODIUM [Concomitant]
     Indication: DYSPEPSIA

REACTIONS (10)
  - NAUSEA [None]
  - VOMITING [None]
  - ABDOMINAL PAIN [None]
  - HYPOPHAGIA [None]
  - INTESTINAL OBSTRUCTION [None]
  - HYPERCALCAEMIA [None]
  - INFECTION [None]
  - NEOPLASM MALIGNANT [None]
  - CONSTIPATION [None]
  - PYREXIA [None]
